FAERS Safety Report 23235750 (Version 1)
Quarter: 2023Q4

REPORT INFORMATION
  Report Type: Spontaneous
  Country: CN (occurrence: CN)
  Receive Date: 20231128
  Receipt Date: 20231128
  Transmission Date: 20240110
  Serious: Yes (Other)
  Sender: FDA-Public Use
  Company Number: CN-JNJFOC-20231152446

PATIENT
  Age: 56 Year
  Sex: Male

DRUGS (9)
  1. IBRUTINIB [Suspect]
     Active Substance: IBRUTINIB
     Indication: Chronic lymphocytic leukaemia
     Dosage: DAY 1 OF CYCLE 1
     Route: 048
  2. IBRUTINIB [Suspect]
     Active Substance: IBRUTINIB
     Indication: Chronic lymphocytic leukaemia
     Route: 048
  3. VENETOCLAX [Suspect]
     Active Substance: VENETOCLAX
     Indication: Chronic lymphocytic leukaemia
     Dosage: ESCALATED TO 50, 100, AND 200 MG
     Route: 065
  4. VENETOCLAX [Suspect]
     Active Substance: VENETOCLAX
     Indication: Chronic lymphocytic leukaemia
     Dosage: DAY 1 OF CYCLE 3, WITH AN INITIAL DOSE
     Route: 065
  5. VENETOCLAX [Suspect]
     Active Substance: VENETOCLAX
     Indication: Chronic lymphocytic leukaemia
     Dosage: FINAL DOSE
     Route: 065
  6. ZANUBRUTINIB [Suspect]
     Active Substance: ZANUBRUTINIB
     Indication: Lymphocytic lymphoma
     Route: 065
  7. RITUXIMAB [Suspect]
     Active Substance: RITUXIMAB
     Indication: Lymphocytic lymphoma
     Dosage: 500 MG?M-2?D-1 ON DAY 1 (CYCLES 2 TO 6) WITH 28 DAYS FOR 1 CYCLE
     Route: 065
  8. RITUXIMAB [Suspect]
     Active Substance: RITUXIMAB
     Indication: Lymphocytic lymphoma
     Dosage: DOSE OF 375 MG? M-2?D-1 ON DAY 1
     Route: 065
  9. RITUXIMAB [Suspect]
     Active Substance: RITUXIMAB
     Indication: Lymphocytic lymphoma
     Dosage: 500 MG?M-2?D-1 ON DAYS 8 AND 15 (CYCLE 1)
     Route: 065

REACTIONS (9)
  - Blood creatine phosphokinase increased [Unknown]
  - Rash maculo-papular [Unknown]
  - Platelet count decreased [Unknown]
  - Haemorrhage [Unknown]
  - Hyperphosphataemia [Unknown]
  - Product use issue [Unknown]
  - Neutrophil count decreased [Unknown]
  - Blood fibrinogen decreased [Unknown]
  - Atrial tachycardia [Unknown]
